FAERS Safety Report 7015758-5 (Version None)
Quarter: 2010Q3

REPORT INFORMATION
  Report Type: 
  Country: None (occurrence: None)
  Receive Date: 20100927
  Receipt Date: 20100721
  Transmission Date: 20110219
  Serious: No
  Sender: FDA-Public Use
  Company Number: US-ASTRAZENECA-2010SE34136

PATIENT
  Age: 68 Year
  Sex: Female

DRUGS (6)
  1. ARIMIDEX [Suspect]
     Indication: BREAST CANCER
     Route: 048
     Dates: start: 20100301
  2. METOPROLOL TARTRATE [Concomitant]
  3. COUMADIN [Concomitant]
  4. ZOLOFT [Concomitant]
  5. VITAMIN D3 [Concomitant]
  6. VITAMIN E [Concomitant]

REACTIONS (2)
  - ABNORMAL DREAMS [None]
  - MUSCLE SPASMS [None]
